FAERS Safety Report 7830385-5 (Version None)
Quarter: 2011Q4

REPORT INFORMATION
  Report Type: 
  Country: None (occurrence: None)
  Receive Date: 20111021
  Receipt Date: 20111017
  Transmission Date: 20120403
  Serious: Yes (Hospitalization)
  Sender: FDA-Public Use
  Company Number: US-AMGEN-USACT2011053592

PATIENT
  Age: 95 Year
  Sex: Female

DRUGS (9)
  1. BLINDED DARBEPOETIN ALFA [Suspect]
     Indication: CARDIAC FAILURE
     Dates: start: 20070731, end: 20111006
  2. BLINDED PLACEBO [Suspect]
     Indication: CARDIAC FAILURE
     Dates: start: 20070731, end: 20111006
  3. PROTONIX [Concomitant]
     Dosage: 40 MG, UNK
     Route: 042
  4. HYDROCODONE BITARTRATE [Concomitant]
  5. SODIUM CHLORIDE [Concomitant]
  6. PLAVIX [Concomitant]
  7. ISOSORBIDE DINITRATE [Concomitant]
  8. DOCUSATE [Concomitant]
  9. INSULIN [Concomitant]

REACTIONS (3)
  - CARDIAC FAILURE CONGESTIVE [None]
  - RENAL FAILURE ACUTE [None]
  - RESPIRATORY ALKALOSIS [None]
